FAERS Safety Report 11191962 (Version 1)
Quarter: 2015Q2

REPORT INFORMATION
  Report Type: Spontaneous
  Country: IT (occurrence: IT)
  Receive Date: 20150616
  Receipt Date: 20150616
  Transmission Date: 20150821
  Serious: Yes (Death, Other)
  Sender: FDA-Public Use
  Company Number: IT-CELGENE-ITA-2015062412

PATIENT

DRUGS (1)
  1. AZACITIDINE INJECTABLE [Suspect]
     Active Substance: AZACITIDINE
     Indication: CHRONIC MYELOMONOCYTIC LEUKAEMIA
     Route: 065

REACTIONS (5)
  - Chronic myelomonocytic leukaemia [Unknown]
  - Acute myeloid leukaemia [Fatal]
  - Treatment failure [Unknown]
  - Lung neoplasm malignant [Fatal]
  - Cardiac disorder [Fatal]
